FAERS Safety Report 9773159 (Version 1)
Quarter: 2013Q4

REPORT INFORMATION
  Report Type: Spontaneous
  Country: FR (occurrence: FR)
  Receive Date: 20131219
  Receipt Date: 20131219
  Transmission Date: 20140711
  Serious: Yes (Other)
  Sender: FDA-Public Use
  Company Number: FR-PFIZER INC-2013361808

PATIENT
  Age: 9 Year
  Sex: Female
  Weight: 30 kg

DRUGS (5)
  1. PRODILANTIN [Suspect]
     Indication: EPILEPSY
     Dosage: 150 MG, 2X/DAY
     Route: 042
     Dates: start: 20131117, end: 20131118
  2. SABRIL [Concomitant]
  3. URBANYL [Concomitant]
  4. EPITOMAX [Concomitant]
  5. KEPPRA [Concomitant]

REACTIONS (4)
  - Vomiting [Recovered/Resolved]
  - Dizziness [Recovered/Resolved]
  - Mallory-Weiss syndrome [Unknown]
  - Haematemesis [Unknown]
